FAERS Safety Report 19404076 (Version 2)
Quarter: 2021Q4

REPORT INFORMATION
  Report Type: Report from Study
  Country: US (occurrence: US)
  Receive Date: 20210610
  Receipt Date: 20211125
  Transmission Date: 20220304
  Serious: Yes (Hospitalization, Other)
  Sender: FDA-Public Use
  Company Number: US-ACADIA PHARMACEUTICALS INC.-ACA-2021-PIM-001878

PATIENT
  Age: 86 Year
  Sex: Male

DRUGS (4)
  1. NUPLAZID [Suspect]
     Active Substance: PIMAVANSERIN TARTRATE
     Indication: Parkinson^s disease
     Dosage: 34 MILLIGRAM, QD
     Route: 048
     Dates: start: 20201216
  2. CARBIDOPA\LEVODOPA [Concomitant]
     Active Substance: CARBIDOPA\LEVODOPA
  3. OFLOXACIN [Concomitant]
     Active Substance: OFLOXACIN
  4. QUETIAPINE [Concomitant]
     Active Substance: QUETIAPINE

REACTIONS (3)
  - Hip fracture [Not Recovered/Not Resolved]
  - Fall [Not Recovered/Not Resolved]
  - Product packaging quantity issue [Not Recovered/Not Resolved]

NARRATIVE: CASE EVENT DATE: 20210518
